FAERS Safety Report 17561729 (Version 1)
Quarter: 2020Q1

REPORT INFORMATION
  Report Type: Spontaneous
  Country: US (occurrence: US)
  Receive Date: 20200319
  Receipt Date: 20200319
  Transmission Date: 20200409
  Serious: No
  Sender: FDA-Public Use
  Company Number: US-PERRIGO-19US006065

PATIENT
  Age: 12 Year
  Sex: Female

DRUGS (1)
  1. LORATADINE AND PSEUDOEPHEDRINE SULFATE [Suspect]
     Active Substance: LORATADINE\PSEUDOEPHEDRINE SULFATE
     Indication: NASAL CONGESTION
     Dosage: 1 TABLET, SINGLE
     Route: 048
     Dates: start: 20190513, end: 20190513

REACTIONS (5)
  - Dysphagia [Unknown]
  - Salivary hypersecretion [Unknown]
  - Retching [Unknown]
  - Anxiety [Unknown]
  - Foreign body in respiratory tract [Unknown]

NARRATIVE: CASE EVENT DATE: 20190513
